FAERS Safety Report 24910089 (Version 1)
Quarter: 2025Q1

REPORT INFORMATION
  Report Type: Spontaneous
  Country: GB (occurrence: GB)
  Receive Date: 20250131
  Receipt Date: 20250131
  Transmission Date: 20250409
  Serious: Yes (Other)
  Sender: AMGEN
  Company Number: GB-AMGEN-GBRSP2025018524

PATIENT
  Sex: Female

DRUGS (1)
  1. ARANESP [Suspect]
     Active Substance: DARBEPOETIN ALFA
     Indication: Haemodialysis
     Dosage: 40 MILLIGRAM, QWK (40 MCG/0.4 ML PFS)
     Route: 058

REACTIONS (1)
  - Transplant [Recovered/Resolved with Sequelae]
